FAERS Safety Report 22631903 (Version 3)
Quarter: 2023Q2

REPORT INFORMATION
  Report Type: Report from Study
  Country: US (occurrence: US)
  Receive Date: 20230623
  Receipt Date: 20230628
  Transmission Date: 20230721
  Serious: No
  Sender: FDA-Public Use
  Company Number: US-002147023-NVSC2023US140107

PATIENT
  Sex: Male
  Weight: 87.09 kg

DRUGS (6)
  1. COSENTYX [Suspect]
     Active Substance: SECUKINUMAB
     Indication: Psoriasis
     Route: 065
  2. COSENTYX [Suspect]
     Active Substance: SECUKINUMAB
     Dosage: UNK (LAST DOSE)
     Route: 065
     Dates: start: 20230223
  3. COSENTYX [Suspect]
     Active Substance: SECUKINUMAB
     Dosage: 300 MG, QW
     Route: 058
     Dates: start: 20230603
  4. COSENTYX [Suspect]
     Active Substance: SECUKINUMAB
     Dosage: TOOK 1/2 DOSE INSTEAD OF FULL DOSE (TOOK 1 PEN)
     Route: 065
     Dates: start: 20230617
  5. CITALOPRAM [Suspect]
     Active Substance: CITALOPRAM HYDROBROMIDE
     Indication: Psoriasis
     Dosage: UNK
     Route: 065
  6. OTEZLA [Concomitant]
     Active Substance: APREMILAST
     Indication: Product used for unknown indication
     Dosage: UNK
     Route: 065

REACTIONS (11)
  - Paraesthesia [Unknown]
  - COVID-19 [Unknown]
  - Upper respiratory tract infection [Unknown]
  - Macule [Unknown]
  - Xerosis [Unknown]
  - Erythema [Unknown]
  - Papule [Unknown]
  - Skin plaque [Unknown]
  - Psoriasis [Unknown]
  - Incorrect dose administered [Unknown]
  - Drug ineffective [Unknown]
